FAERS Safety Report 19234477 (Version 4)
Quarter: 2021Q2

REPORT INFORMATION
  Report Type: Spontaneous
  Country: US (occurrence: US)
  Receive Date: 20210508
  Receipt Date: 20210620
  Transmission Date: 20210717
  Serious: No
  Sender: FDA-Public Use
  Company Number: US-GLAXOSMITHKLINE-US2021095914

PATIENT
  Age: 73 Year
  Sex: Female

DRUGS (2)
  1. ZEJULA [Suspect]
     Active Substance: NIRAPARIB
     Indication: FALLOPIAN TUBE CANCER
     Dosage: 200 MG, QD
     Route: 048
     Dates: start: 202104
  2. ZEJULA [Suspect]
     Active Substance: NIRAPARIB
     Dosage: 200 MG, QD
     Route: 048
     Dates: start: 20210422

REACTIONS (9)
  - Blood glucose decreased [Unknown]
  - Heart rate irregular [Recovered/Resolved]
  - Insomnia [Recovering/Resolving]
  - Supraventricular extrasystoles [Unknown]
  - Skin burning sensation [Unknown]
  - Ventricular extrasystoles [Unknown]
  - Photosensitivity reaction [Unknown]
  - Liver function test increased [Unknown]
  - Heart rate increased [Unknown]

NARRATIVE: CASE EVENT DATE: 202105
